FAERS Safety Report 26145566 (Version 1)
Quarter: 2025Q4

REPORT INFORMATION
  Report Type: Spontaneous
  Country: US (occurrence: None)
  Receive Date: 20251210
  Receipt Date: 20251210
  Transmission Date: 20260117
  Serious: Yes (Other)
  Sender: FDA-CTU
  Company Number: None

PATIENT
  Age: 67 Year
  Sex: Female
  Weight: 75.15 kg

DRUGS (8)
  1. RESTASIS [Suspect]
     Active Substance: CYCLOSPORINE
     Indication: Dry eye
     Dosage: EVERY 12 HOURS OPHTHALMIC
     Route: 047
     Dates: start: 20251207, end: 20251210
  2. LEVOTHYROXINE [Concomitant]
     Active Substance: LEVOTHYROXINE
  3. MOTRIN [Concomitant]
     Active Substance: IBUPROFEN
  4. Hydroxoraliquine [Concomitant]
  5. Metoperol [Concomitant]
  6. VITAMIN D3 [Concomitant]
     Active Substance: CHOLECALCIFEROL
  7. VITAMINS [Concomitant]
     Active Substance: VITAMINS
  8. OMEGA 3 [Concomitant]
     Active Substance: CAPSAICIN

REACTIONS (4)
  - Eye irritation [None]
  - Vision blurred [None]
  - Eye pain [None]
  - Excessive eye blinking [None]

NARRATIVE: CASE EVENT DATE: 20251208
